FAERS Safety Report 5890481-9 (Version None)
Quarter: 2008Q3

REPORT INFORMATION
  Report Type: 
  Country: None (occurrence: None)
  Receive Date: 20080922
  Receipt Date: 20080911
  Transmission Date: 20090109
  Serious: Yes (Death, Life-Threatening, Other)
  Sender: FDA-Public Use
  Company Number: GB-JNJFOC-20080902098

PATIENT
  Sex: Female
  Weight: 68 kg

DRUGS (15)
  1. REMICADE [Suspect]
     Indication: RHEUMATOID ARTHRITIS
     Route: 042
  2. PREDNISONE TAB [Concomitant]
  3. HYDROXYCHLOROQUINE [Concomitant]
  4. CLOPIDOGREL [Concomitant]
  5. ACETAMINOPHEN W/ CODEINE [Concomitant]
  6. FERROUS SULFATE TAB [Concomitant]
  7. FOLIC ACID [Concomitant]
  8. FOSAMAX [Concomitant]
  9. FRUSEMIDE [Concomitant]
  10. GILCLAZIDE [Concomitant]
  11. LANSOPRAZOLE [Concomitant]
  12. METHOTREXATE [Concomitant]
  13. SLOW-K [Concomitant]
  14. METFORMIN HCL [Concomitant]
  15. SULFASALAZINE [Concomitant]

REACTIONS (1)
  - DEATH [None]
